FAERS Safety Report 20181506 (Version 1)
Quarter: 2021Q4

REPORT INFORMATION
  Report Type: Spontaneous
  Country: US (occurrence: None)
  Receive Date: 20211213
  Receipt Date: 20211213
  Transmission Date: 20220303
  Serious: No
  Sender: FDA-Public Use
  Company Number: None

PATIENT

DRUGS (1)
  1. ZIPRASIDONE MESYLATE ANHYDROUS [Suspect]
     Active Substance: ZIPRASIDONE MESYLATE ANHYDROUS

REACTIONS (1)
  - Product label issue [None]
